FAERS Safety Report 5261925-0 (Version None)
Quarter: 2007Q1

REPORT INFORMATION
  Report Type: 
  Country: None (occurrence: None)
  Receive Date: 20070308
  Receipt Date: 20070227
  Transmission Date: 20070707
  Serious: Yes (Hospitalization, Other)
  Sender: FDA-Public Use
  Company Number: 163-21880-06081371

PATIENT
  Age: 83 Year
  Sex: Female

DRUGS (6)
  1. REVLIMID [Suspect]
     Indication: MYELODYSPLASTIC SYNDROME
     Dosage: SEE IMAGE
     Route: 048
     Dates: start: 20060718, end: 20060901
  2. REVLIMID [Suspect]
     Indication: MYELODYSPLASTIC SYNDROME
     Dosage: SEE IMAGE
     Route: 048
     Dates: start: 20060912, end: 20061121
  3. PROCRIT [Concomitant]
  4. TYLENOL [Concomitant]
  5. BENADRYL [Concomitant]
  6. ASPIRIN [Concomitant]

REACTIONS (13)
  - ANAEMIA [None]
  - AUTOIMMUNE THROMBOCYTOPENIA [None]
  - CITROBACTER INFECTION [None]
  - CONDITION AGGRAVATED [None]
  - EOSINOPHILIC PNEUMONIA [None]
  - EPISTAXIS [None]
  - GRANULOCYTE COUNT DECREASED [None]
  - HAEMATOMA [None]
  - MOUTH HAEMORRHAGE [None]
  - PURPURA [None]
  - URINARY TRACT INFECTION [None]
  - WEIGHT INCREASED [None]
  - WHITE BLOOD CELL COUNT DECREASED [None]
